FAERS Safety Report 11004002 (Version 1)
Quarter: 2015Q2

REPORT INFORMATION
  Report Type: Spontaneous
  Country: US (occurrence: US)
  Receive Date: 20150409
  Receipt Date: 20150409
  Transmission Date: 20150821
  Serious: Yes (Hospitalization, Other)
  Sender: FDA-Public Use
  Company Number: US-JNJFOC-20150321758

PATIENT
  Age: 8 Decade
  Sex: Female

DRUGS (2)
  1. XARELTO [Suspect]
     Active Substance: RIVAROXABAN
     Indication: DEEP VEIN THROMBOSIS
     Route: 048
  2. ANTIFUNGAL MEDICATION [Interacting]
     Active Substance: UNSPECIFIED INGREDIENT
     Indication: HERPES ZOSTER
     Route: 065

REACTIONS (3)
  - Herpes zoster [Unknown]
  - Pulmonary embolism [Recovered/Resolved]
  - Drug interaction [Unknown]

NARRATIVE: CASE EVENT DATE: 201503
